FAERS Safety Report 19666264 (Version 1)
Quarter: 2021Q3

REPORT INFORMATION
  Report Type: Spontaneous
  Country: US (occurrence: US)
  Receive Date: 20210714
  Receipt Date: 20210714
  Transmission Date: 20211014
  Serious: Yes (Hospitalization)
  Sender: FDA-Public Use
  Company Number: None

PATIENT
  Age: 49 Year
  Sex: Female
  Weight: 108.86 kg

DRUGS (2)
  1. HUMIRA [Suspect]
     Active Substance: ADALIMUMAB
     Indication: RHEUMATOID ARTHRITIS
     Route: 058
  2. HUMIRA [Concomitant]
     Active Substance: ADALIMUMAB

REACTIONS (3)
  - Anaemia [None]
  - Neutropenia [None]
  - Thrombocytopenia [None]

NARRATIVE: CASE EVENT DATE: 20210714
